FAERS Safety Report 6737536-4 (Version None)
Quarter: 2010Q2

REPORT INFORMATION
  Report Type: 
  Country: None (occurrence: None)
  Receive Date: 20100524
  Receipt Date: 20100503
  Transmission Date: 20101027
  Serious: Yes (Other)
  Sender: FDA-Public Use
  Company Number: FR-WYE-H14617810

PATIENT
  Age: 46 Year
  Sex: Male

DRUGS (1)
  1. INIPOMP [Suspect]
     Indication: HIATUS HERNIA
     Route: 048
     Dates: start: 20081010, end: 20100101

REACTIONS (2)
  - GLOMERULONEPHRITIS MEMBRANOUS [None]
  - VERTIGO [None]
